FAERS Safety Report 23177887 (Version 1)
Quarter: 2023Q4

REPORT INFORMATION
  Report Type: Spontaneous
  Country: ES (occurrence: ES)
  Receive Date: 20231113
  Receipt Date: 20231113
  Transmission Date: 20240109
  Serious: Yes (Hospitalization)
  Sender: FDA-Public Use
  Company Number: None

PATIENT
  Age: 91 Year
  Sex: Male
  Weight: 62.9 kg

DRUGS (4)
  1. FUROSEMIDE [Suspect]
     Active Substance: FUROSEMIDE
     Indication: Cardiac failure
     Dosage: 160 MG DAILY IN CONTINUOUS INFUSION
     Route: 042
     Dates: start: 20230919, end: 20231002
  2. SPIRONOLACTONE [Suspect]
     Active Substance: SPIRONOLACTONE
     Indication: Cardiac failure
     Dosage: ROA-20053000
     Route: 048
     Dates: start: 20220608
  3. ACETAZOLAMIDE [Suspect]
     Active Substance: ACETAZOLAMIDE
     Indication: Cardiac failure
     Dosage: 250 MG EVERY 48 HOURS, ROA-20053000
     Route: 048
     Dates: start: 20230918, end: 20230928
  4. CHLORTHALIDONE [Suspect]
     Active Substance: CHLORTHALIDONE
     Indication: Cardiac failure
     Dosage: 25 MG EVERY 48 HOURS, ROA-20053000
     Route: 048
     Dates: start: 20230919, end: 20230928

REACTIONS (2)
  - Acute kidney injury [Recovered/Resolved]
  - Uraemic encephalopathy [Recovered/Resolved]

NARRATIVE: CASE EVENT DATE: 20231002
